FAERS Safety Report 24114181 (Version 1)
Quarter: 2024Q3

REPORT INFORMATION
  Report Type: Spontaneous
  Country: IN (occurrence: IN)
  Receive Date: 20240720
  Receipt Date: 20240720
  Transmission Date: 20241017
  Serious: Yes (Hospitalization, Other)
  Sender: MACLEODS
  Company Number: IN-MLMSERVICE-20240701-PI118512-00322-1

PATIENT

DRUGS (2)
  1. TRAMADOL [Suspect]
     Active Substance: TRAMADOL\TRAMADOL HYDROCHLORIDE
     Indication: Procedural pain
     Route: 042
  2. TRAMADOL [Suspect]
     Active Substance: TRAMADOL\TRAMADOL HYDROCHLORIDE
     Indication: Procedural pain
     Dosage: DEVELOPED TOLERANCE AND INCREASED
     Route: 042

REACTIONS (7)
  - Galactorrhoea [Unknown]
  - Blood prolactin increased [Unknown]
  - Anger [Unknown]
  - Suicide attempt [Unknown]
  - Suicidal ideation [Unknown]
  - Drug dependence [Unknown]
  - Drug abuse [Unknown]
